FAERS Safety Report 4690007-1 (Version None)
Quarter: 2005Q2

REPORT INFORMATION
  Report Type: 
  Country: None (occurrence: None)
  Receive Date: 20050513
  Receipt Date: 20040609
  Transmission Date: 20051028
  Serious: Yes (Life-Threatening)
  Sender: FDA-Public Use
  Company Number: 2004-117421-NL

PATIENT

DRUGS (1)
  1. ZEMURON [Suspect]
     Dosage: DF, 5 ML VIAL
     Dates: start: 20040101, end: 20040101

REACTIONS (1)
  - NEUROMUSCULAR BLOCK PROLONGED [None]
